FAERS Safety Report 14581959 (Version 3)
Quarter: 2018Q1

REPORT INFORMATION
  Report Type: Spontaneous
  Country: US (occurrence: US)
  Receive Date: 20180228
  Receipt Date: 20180328
  Transmission Date: 20180509
  Serious: Yes (Hospitalization, Other)
  Sender: FDA-Public Use
  Company Number: US-GLAXOSMITHKLINE-US2018032643

PATIENT
  Age: 79 Year
  Sex: Male

DRUGS (9)
  1. TOPROL XL [Concomitant]
     Active Substance: METOPROLOL SUCCINATE
  2. CARDIZEM [Concomitant]
     Active Substance: DILTIAZEM HYDROCHLORIDE
  3. DIOVAN [Concomitant]
     Active Substance: VALSARTAN
  4. ASPIRIN. [Concomitant]
     Active Substance: ASPIRIN
  5. VENTOLIN HFA [Suspect]
     Active Substance: ALBUTEROL SULFATE
     Indication: BRONCHOSPASM
     Dosage: 2 PUFF(S), PRN
     Route: 055
  6. MUCINEX [Concomitant]
     Active Substance: GUAIFENESIN
  7. PREDNISONE. [Concomitant]
     Active Substance: PREDNISONE
  8. CALCIUM + MAGNESIUM + ZINC [Concomitant]
     Active Substance: CALCIUM\MAGNESIUM\ZINC
  9. HYDROCHLOROTHIAZIDE. [Concomitant]
     Active Substance: HYDROCHLOROTHIAZIDE

REACTIONS (6)
  - Wrist fracture [Recovering/Resolving]
  - Product taste abnormal [Unknown]
  - Bronchiectasis [Recovered/Resolved]
  - Atrial fibrillation [Recovering/Resolving]
  - Wrist surgery [Recovering/Resolving]
  - White blood cell count increased [Recovering/Resolving]

NARRATIVE: CASE EVENT DATE: 201801
